FAERS Safety Report 16509060 (Version 1)
Quarter: 2019Q3

REPORT INFORMATION
  Report Type: Spontaneous
  Country: ES (occurrence: ES)
  Receive Date: 20190702
  Receipt Date: 20190702
  Transmission Date: 20191004
  Serious: Yes (Hospitalization)
  Sender: FDA-Public Use
  Company Number: ES-ACCORD-136106

PATIENT
  Age: 8 Year
  Sex: Female
  Weight: 19 kg

DRUGS (5)
  1. RITUXIMAB. [Interacting]
     Active Substance: RITUXIMAB
     Indication: DERMATOMYOSITIS
     Route: 042
     Dates: start: 20190321
  2. METHYLPREDNISOLONE. [Interacting]
     Active Substance: METHYLPREDNISOLONE
     Indication: DERMATOMYOSITIS
     Route: 042
     Dates: start: 20190303
  3. METHOTREXATE. [Suspect]
     Active Substance: METHOTREXATE
     Indication: DERMATOMYOSITIS
     Route: 058
     Dates: start: 20190302
  4. AMLODIPINE [Concomitant]
     Active Substance: AMLODIPINE BESYLATE
     Indication: HYPERTENSION
     Route: 048
     Dates: start: 20190316
  5. DOLQUINE [Interacting]
     Active Substance: HYDROXYCHLOROQUINE SULFATE
     Indication: DERMATOMYOSITIS
     Dosage: 200 MG COATED TABLETS, 30 TABLETS
     Route: 048
     Dates: start: 20190315

REACTIONS (3)
  - Skin infection [Recovering/Resolving]
  - Drug interaction [Unknown]
  - Off label use [Unknown]

NARRATIVE: CASE EVENT DATE: 20190426
